FAERS Safety Report 14635558 (Version 3)
Quarter: 2024Q1

REPORT INFORMATION
  Report Type: Spontaneous
  Country: SE (occurrence: SE)
  Receive Date: 20180314
  Receipt Date: 20240328
  Transmission Date: 20240409
  Serious: Yes (Death, Other)
  Sender: FDA-Public Use
  Company Number: SE-AUROBINDO-AUR-APL-2018-012394

PATIENT
  Age: 30 Year
  Sex: Male

DRUGS (12)
  1. ZOLPIDEM [Suspect]
     Active Substance: ZOLPIDEM TARTRATE
     Indication: Product used for unknown indication
     Dosage: UNK
     Route: 048
  2. SERTRALINE [Suspect]
     Active Substance: SERTRALINE HYDROCHLORIDE
     Indication: Product used for unknown indication
     Dosage: UNK
     Route: 048
  3. ALPRAZOLAM [Interacting]
     Active Substance: ALPRAZOLAM
     Indication: Product used for unknown indication
     Dosage: UNK
     Route: 065
  4. ACETAMINOPHEN [Suspect]
     Active Substance: ACETAMINOPHEN
     Indication: Product used for unknown indication
     Dosage: UNK
     Route: 065
  5. MORPHINE [Suspect]
     Active Substance: MORPHINE
     Indication: Product used for unknown indication
     Dosage: UNK
     Route: 065
  6. CODEINE [Suspect]
     Active Substance: CODEINE
     Indication: Product used for unknown indication
     Dosage: UNK
     Route: 065
  7. CARISOPRODOL [Suspect]
     Active Substance: CARISOPRODOL
     Indication: Product used for unknown indication
     Dosage: UNK
     Route: 065
  8. NANDROLONE [Suspect]
     Active Substance: NANDROLONE
     Indication: Product used for unknown indication
     Dosage: UNK
     Route: 065
  9. AMPHETAMINE [Suspect]
     Active Substance: AMPHETAMINE
     Indication: Substance abuse
     Dosage: UNK
     Route: 065
  10. SODIUM OXYBATE [Interacting]
     Active Substance: SODIUM OXYBATE
     Indication: Substance abuse
     Dosage: UNK
     Route: 065
  11. DEXTROAMPHETAMINE SULFATE [Suspect]
     Active Substance: DEXTROAMPHETAMINE SULFATE
     Indication: Product used for unknown indication
     Dosage: UNK
     Route: 065
  12. SERTRALINE [Suspect]
     Active Substance: SERTRALINE HYDROCHLORIDE
     Indication: Product used for unknown indication
     Dosage: UNK
     Route: 065

REACTIONS (8)
  - Death [Fatal]
  - Overdose [Fatal]
  - Toxicity to various agents [Fatal]
  - Drug interaction [Fatal]
  - Drug abuse [Fatal]
  - Adverse drug reaction [Fatal]
  - Medication error [Unknown]
  - Intentional product misuse [Unknown]
